FAERS Safety Report 13621007 (Version 2)
Quarter: 2017Q2

REPORT INFORMATION
  Report Type: Report from Study
  Country: IT (occurrence: IT)
  Receive Date: 20170607
  Receipt Date: 20170615
  Transmission Date: 20170830
  Serious: Yes (Death)
  Sender: FDA-Public Use
  Company Number: IT-PFIZER INC-2017238464

PATIENT
  Age: 3 Year
  Sex: Male

DRUGS (7)
  1. VINCRISTINE SULFATE. [Suspect]
     Active Substance: VINCRISTINE SULFATE
     Indication: ALVEOLAR RHABDOMYOSARCOMA
     Dosage: 1.5 MG/M2 IV (MAXIMUM, 2.0 MG) WEEKLY FOR 7 WEEKS THEN AT WEEK 9
     Route: 042
  2. VINCRISTINE SULFATE. [Suspect]
     Active Substance: VINCRISTINE SULFATE
     Dosage: 1.5 MG/M2, (MAXIMUM, 2.0 MG)  WEEKLY FOR 7 WEEKS THEN AT WEEK 9
  3. DOXORUBICIN HCL [Suspect]
     Active Substance: DOXORUBICIN HYDROCHLORIDE
     Indication: ALVEOLAR RHABDOMYOSARCOMA
     Dosage: 40 MG/M2 IV ON DAYS 1 AND 2 OF WEEK 4
     Route: 042
  4. ACTINOMYCIN D [Suspect]
     Active Substance: DACTINOMYCIN
     Indication: ALVEOLAR RHABDOMYOSARCOMA
     Dosage: 1.5 MG/M2 IV (MAXIMUM, 2.0 MG) ON DAY 1 OF WEEKS 1 AND 7
     Route: 042
  5. ACTINOMYCIN D [Suspect]
     Active Substance: DACTINOMYCIN
     Dosage: 1.5 MG/M2, (MAXIMUM, 2.0 MG) ON DAY 1 OF WEEKS 1 AND 7
     Route: 042
  6. IFOSFAMIDE. [Suspect]
     Active Substance: IFOSFAMIDE
     Indication: ALVEOLAR RHABDOMYOSARCOMA
     Dosage: 2 G/M2, CYCLIC, DAYS 1-5 OF WEEKS 1, 4, AND 7
     Route: 042
  7. IFOSFAMIDE. [Suspect]
     Active Substance: IFOSFAMIDE
     Dosage: 3 G/M2, DAYS 1-3 OF WEEKS 1, 4, AND 7
     Route: 042

REACTIONS (2)
  - Desmoplastic small round cell tumour [Fatal]
  - Second primary malignancy [Fatal]
